FAERS Safety Report 15098450 (Version 1)
Quarter: 2018Q3

REPORT INFORMATION
  Report Type: Spontaneous
  Country: DK (occurrence: DK)
  Receive Date: 20180702
  Receipt Date: 20180702
  Transmission Date: 20181010
  Serious: Yes (Other)
  Sender: FDA-Public Use
  Company Number: DK-SA-2018SA171047

PATIENT
  Age: 39 Year
  Sex: Female
  Weight: 51 kg

DRUGS (1)
  1. AUBAGIO [Suspect]
     Active Substance: TERIFLUNOMIDE
     Indication: MULTIPLE SCLEROSIS
     Dosage: STYRKE: 14 MG.
     Route: 048
     Dates: start: 20140730, end: 20180423

REACTIONS (2)
  - Breast cancer [Unknown]
  - Breast operation [Recovered/Resolved]

NARRATIVE: CASE EVENT DATE: 20180423
